FAERS Safety Report 8803296 (Version 2)
Quarter: 2012Q4

REPORT INFORMATION
  Report Type: 
  Country: SK (occurrence: SK)
  Receive Date: 20120924
  Receipt Date: 20120927
  Transmission Date: 20130627
  Serious: Yes (Hospitalization, Other)
  Sender: FDA-Public Use
  Company Number: SK-009507513-1209SVK008739

PATIENT
  Age: 53 Year
  Sex: Male

DRUGS (3)
  1. PEGINTRON [Suspect]
     Indication: HEPATITIS C
     Dosage: 1000 Microgram, qw
     Dates: start: 20120606, end: 20120906
  2. REBETOL [Suspect]
     Indication: HEPATITIS C
     Dosage: 5 DF, qd
     Dates: start: 20120606, end: 20120906
  3. VICTRELIS [Suspect]
     Indication: HEPATITIS C
     Dosage: 12 DF, qd
     Dates: start: 20120704, end: 20120906

REACTIONS (4)
  - Neutropenia [Recovered/Resolved]
  - Thrombocytopenia [Recovered/Resolved]
  - Weight decreased [Recovered/Resolved]
  - Anaemia [Recovered/Resolved]
